FAERS Safety Report 4352915-0 (Version None)
Quarter: 2004Q2

REPORT INFORMATION
  Report Type: 
  Country: None (occurrence: None)
  Receive Date: 20040429
  Receipt Date: 20040421
  Transmission Date: 20050107
  Serious: Yes (Hospitalization)
  Sender: FDA-Public Use
  Company Number: A001-OCT-3414

PATIENT
  Age: 87 Year
  Sex: Female

DRUGS (22)
  1. ARICEPT [Suspect]
     Indication: DEMENTIA ALZHEIMER'S TYPE
     Dosage: 10 MG, 1 IN 1 D, ORAL
     Route: 048
     Dates: start: 20030120, end: 20030807
  2. TIMOLOL MALEATE [Concomitant]
  3. POTASSIUM CHLORIDE [Concomitant]
  4. FLUOCINOLONE ACETONIDE (FLUOCILONONE ACETONIDE) [Concomitant]
  5. BRIMONODINE TARTRATE (BRIMONIDINE TARTRATE) [Concomitant]
  6. TETRYZOLINE HYDROCHLORIDE (TETRYZOLINE HYDROCHLORIDE) [Concomitant]
  7. TETRACYCLINE [Concomitant]
  8. ACETAMINOPHEN [Concomitant]
  9. BETAMETHASONE [Concomitant]
  10. PSYLLIUM HYDROPHILIC MUCILLOID (PSYLLIUM HYDROPHILIC MUCILLOID) [Concomitant]
  11. OXYBUTYNIN [Concomitant]
  12. FUROSEMIDE [Concomitant]
  13. LEVOTHYROXINE SODIUM [Concomitant]
  14. SIMVASTATIN [Concomitant]
  15. MULTIVITAMIN [Concomitant]
  16. TOCOPHEROL CONCENTRATE CAP [Concomitant]
  17. CALCIUM (CALCIUM) [Concomitant]
  18. IBUPROFEN [Concomitant]
  19. CELECOXIB (CELECOXIB) [Concomitant]
  20. KETOROLAC [Concomitant]
  21. BACTROBAN (MUPIROCIN) [Concomitant]
  22. COLACE (DOCUSATE SODIUM) [Concomitant]

REACTIONS (9)
  - ABDOMINAL DISTENSION [None]
  - ABDOMINAL PAIN [None]
  - CONSTIPATION [None]
  - DEHYDRATION [None]
  - DIVERTICULUM [None]
  - FALL [None]
  - JOINT INJURY [None]
  - NAUSEA [None]
  - VOMITING [None]
